FAERS Safety Report 13822659 (Version 2)
Quarter: 2017Q3

REPORT INFORMATION
  Report Type: Spontaneous
  Country: BR (occurrence: BR)
  Receive Date: 20170801
  Receipt Date: 20170918
  Transmission Date: 20171127
  Serious: No
  Sender: FDA-Public Use
  Company Number: BR-PFIZER INC-2017329806

PATIENT
  Age: 93 Year
  Sex: Female

DRUGS (3)
  1. LIPITOR [Suspect]
     Active Substance: ATORVASTATIN CALCIUM
     Indication: BLOOD PRESSURE MEASUREMENT
     Dosage: 80 MG, 1X/DAY
     Dates: start: 2012, end: 2016
  2. CILOSTAZOL AL [Suspect]
     Active Substance: CILOSTAZOL
     Dosage: UNK
     Dates: start: 2011
  3. AAS [Suspect]
     Active Substance: ASPIRIN
     Indication: ANTICOAGULANT THERAPY
     Dosage: UNK
     Dates: end: 201706

REACTIONS (1)
  - Product use in unapproved indication [Unknown]
